FAERS Safety Report 4818923-8 (Version None)
Quarter: 2005Q4

REPORT INFORMATION
  Report Type: 
  Country: None (occurrence: None)
  Receive Date: 20051101
  Receipt Date: 20051020
  Transmission Date: 20060501
  Serious: No
  Sender: FDA-Public Use
  Company Number: 2005135775

PATIENT
  Age: 77 Year
  Sex: 0

DRUGS (1)
  1. VFEND [Suspect]
     Indication: ASPERGILLOMA
     Dosage: 400 MG, INTRAVENOUS
     Route: 042
     Dates: start: 20050917

REACTIONS (3)
  - CONDITION AGGRAVATED [None]
  - HEPATIC FUNCTION ABNORMAL [None]
  - LUNG NEOPLASM MALIGNANT [None]
